FAERS Safety Report 6995126-2 (Version None)
Quarter: 2010Q3

REPORT INFORMATION
  Report Type: 
  Country: None (occurrence: None)
  Receive Date: 20100917
  Receipt Date: 20081201
  Transmission Date: 20110219
  Serious: Yes (Other)
  Sender: FDA-Public Use
  Company Number: US-WYE-H04727308

PATIENT
  Sex: Female

DRUGS (3)
  1. PREMPRO [Suspect]
  2. FEMHRT [Suspect]
  3. ACTIVELLA [Suspect]

REACTIONS (2)
  - BREAST CANCER [None]
  - MUSCULOSKELETAL STIFFNESS [None]
